FAERS Safety Report 9678629 (Version 1)
Quarter: 2013Q4

REPORT INFORMATION
  Report Type: Spontaneous
  Country: BR (occurrence: BR)
  Receive Date: 20131108
  Receipt Date: 20131108
  Transmission Date: 20140711
  Serious: Yes (Other)
  Sender: FDA-Public Use
  Company Number: BR-PFIZER INC-2013317223

PATIENT
  Age: 51 Year
  Sex: Female

DRUGS (2)
  1. XALATAN [Suspect]
     Indication: GLAUCOMA
     Dosage: 3 UG, 2X/DAY (1 DROP EACH EYE, 2X/DAY)
     Route: 047
     Dates: start: 201305
  2. COMBIGAN [Concomitant]
     Indication: GLAUCOMA
     Dosage: 1 DROP EACH EYE, 2X/DAY
     Route: 047

REACTIONS (2)
  - Eye disorder [Unknown]
  - Off label use [Not Recovered/Not Resolved]
